FAERS Safety Report 7506999-9 (Version None)
Quarter: 2011Q2

REPORT INFORMATION
  Report Type: 
  Country: None (occurrence: None)
  Receive Date: 20110526
  Receipt Date: 20110511
  Transmission Date: 20111010
  Serious: No
  Sender: FDA-Public Use
  Company Number: US-B.I. PHARMACEUTICALS,INC./RIDGEFIELD-2011-BP-12845BP

PATIENT
  Sex: Female

DRUGS (3)
  1. ATENOLOL [Concomitant]
     Indication: HYPERTENSION
  2. CLARITIN [Concomitant]
     Indication: HYPERSENSITIVITY
  3. PRADAXA [Suspect]
     Indication: ATRIAL FIBRILLATION
     Dosage: 300 MG
     Route: 048
     Dates: start: 20110427

REACTIONS (5)
  - HEADACHE [None]
  - FATIGUE [None]
  - DISTURBANCE IN ATTENTION [None]
  - FLUSHING [None]
  - SOMNOLENCE [None]
